FAERS Safety Report 18695245 (Version 1)
Quarter: 2021Q1

REPORT INFORMATION
  Report Type: Report from Study
  Country: CA (occurrence: CA)
  Receive Date: 20210104
  Receipt Date: 20210104
  Transmission Date: 20210419
  Serious: Yes (Other)
  Sender: FDA-Public Use
  Company Number: CA-PFIZER INC-2020519866

PATIENT
  Age: 69 Year
  Sex: Male

DRUGS (23)
  1. CIPRO [Suspect]
     Active Substance: CIPROFLOXACIN HYDROCHLORIDE
     Indication: MIGRAINE
     Dosage: 1 DF, 2X/DAY
     Route: 065
  2. SULFASALAZINE. [Suspect]
     Active Substance: SULFASALAZINE
     Indication: MIGRAINE
     Dosage: UNK
     Route: 065
  3. AMITRIPTYLINE [Suspect]
     Active Substance: AMITRIPTYLINE
     Dosage: 4 DF
     Route: 065
  4. PREDNISONE. [Concomitant]
     Active Substance: PREDNISONE
     Dosage: UNK
     Route: 065
  5. ATORVASTATIN CALCIUM. [Suspect]
     Active Substance: ATORVASTATIN CALCIUM
     Indication: MIGRAINE
     Dosage: 1 DF
     Route: 065
  6. BISACODYL. [Suspect]
     Active Substance: BISACODYL
     Dosage: 1 DF
     Route: 065
  7. PREDNISONE. [Concomitant]
     Active Substance: PREDNISONE
     Dosage: UNK
     Route: 065
  8. CARBAMAZEPINE. [Suspect]
     Active Substance: CARBAMAZEPINE
     Indication: MIGRAINE
     Dosage: 1 DF
     Route: 065
  9. DOCUSATE [Suspect]
     Active Substance: DOCUSATE
     Indication: MIGRAINE
     Dosage: 1 DF
     Route: 065
  10. MOMETASONE FUROATE. [Suspect]
     Active Substance: MOMETASONE FUROATE
     Dosage: 2 DF
     Route: 055
  11. MORPHINE [Suspect]
     Active Substance: MORPHINE
     Indication: MIGRAINE
     Dosage: 1 DF, 1X/DAY
     Route: 065
  12. MORPHINE [Suspect]
     Active Substance: MORPHINE
     Indication: MIGRAINE
     Dosage: 1 DF, 1X/DAY
     Route: 065
  13. ULTIBRO BREEZHALER [Suspect]
     Active Substance: GLYCOPYRRONIUM\INDACATEROL
     Indication: MIGRAINE
     Dosage: 1 DF, 1X/DAY
     Route: 055
  14. BIAXIN [Concomitant]
     Active Substance: CLARITHROMYCIN
     Dosage: 2 DF, 1X/DAY (1 EVERY 1 DAYS)
     Route: 065
  15. AMITRIPTYLINE [Suspect]
     Active Substance: AMITRIPTYLINE
     Dosage: 2 DF
     Route: 065
  16. CARBAMAZEPINE. [Suspect]
     Active Substance: CARBAMAZEPINE
     Dosage: 1 DF
     Route: 065
  17. MOMETASONE FUROATE. [Suspect]
     Active Substance: MOMETASONE FUROATE
     Dosage: 2 DF
     Route: 055
  18. MOMETASONE FUROATE. [Suspect]
     Active Substance: MOMETASONE FUROATE
     Dosage: 2 DF
     Route: 055
  19. RABEPRAZOLE SODIUM. [Suspect]
     Active Substance: RABEPRAZOLE SODIUM
     Indication: MIGRAINE
     Dosage: 1 DF, 1X/DAY
     Route: 065
  20. MOXIFLOXACIN HYDROCHLORIDE. [Concomitant]
     Active Substance: MOXIFLOXACIN HYDROCHLORIDE
     Dosage: 1 DF, 1X/DAY
     Route: 065
  21. PREGABALIN. [Suspect]
     Active Substance: PREGABALIN
     Indication: MIGRAINE
     Dosage: UNK
     Route: 065
  22. DOCUSATE [Suspect]
     Active Substance: DOCUSATE
     Indication: MIGRAINE
     Dosage: 3 DF
     Route: 065
  23. CEPHALEXIN MONOHYDRATE. [Concomitant]
     Active Substance: CEPHALEXIN MONOHYDRATE
     Dosage: 1 DF, 4X/DAY
     Route: 065

REACTIONS (13)
  - Asthma [Unknown]
  - Dysarthria [Unknown]
  - Dyskinesia [Unknown]
  - Pain [Unknown]
  - Off label use [Unknown]
  - Sitting disability [Unknown]
  - Clumsiness [Unknown]
  - Oedema [Unknown]
  - Drug intolerance [Unknown]
  - Limb injury [Unknown]
  - Speech disorder [Unknown]
  - Dizziness [Unknown]
  - Respiration abnormal [Unknown]
